FAERS Safety Report 21879434 (Version 3)
Quarter: 2023Q1

REPORT INFORMATION
  Report Type: Report from Study
  Country: AU (occurrence: AU)
  Receive Date: 20230118
  Receipt Date: 20230206
  Transmission Date: 20230417
  Serious: Yes (Death, Hospitalization)
  Sender: FDA-Public Use
  Company Number: AU-PFIZER INC-PV202300008410

PATIENT
  Age: 84 Year
  Sex: Male
  Weight: 57 kg

DRUGS (11)
  1. TAFAMIDIS [Suspect]
     Active Substance: TAFAMIDIS
     Indication: Cardiac amyloidosis
     Dosage: 61 MG, DAILY
     Route: 048
     Dates: start: 20200114
  2. DUTASTERIDE\TAMSULOSIN [Concomitant]
     Active Substance: DUTASTERIDE\TAMSULOSIN
     Indication: Benign prostatic hyperplasia
     Dosage: 0.5/0.4MG, DAILY
     Route: 048
     Dates: start: 2009
  3. PANTOPRAZOLE [Concomitant]
     Active Substance: PANTOPRAZOLE
     Indication: Gastrooesophageal reflux disease
     Dosage: 40 MG, DAILY
     Route: 048
     Dates: start: 2012
  4. COUMADIN [Concomitant]
     Active Substance: WARFARIN SODIUM
     Indication: Transient ischaemic attack
     Dosage: 1-1.5MG, DAILY
     Route: 048
  5. PROLIA [Concomitant]
     Active Substance: DENOSUMAB
     Indication: Osteoporosis
     Dosage: 60 MG, 6 MONTHLY
     Route: 030
  6. SPIRONOLACTONE [Concomitant]
     Active Substance: SPIRONOLACTONE
     Indication: Cardiac failure
     Dosage: 12.5 MG, ALTERNATE DAY
     Route: 048
     Dates: start: 20201006
  7. COLCHICINE [Concomitant]
     Active Substance: COLCHICINE
     Indication: Gout
     Dosage: 500 UG, DAILY
     Route: 048
     Dates: start: 202107
  8. ALLOPURINOL [Concomitant]
     Active Substance: ALLOPURINOL
     Indication: Gout
     Dosage: 200 MG
     Route: 048
     Dates: start: 20220207
  9. FUROSEMIDE [Concomitant]
     Active Substance: FUROSEMIDE
     Indication: Cardiac failure
     Dosage: 40 MG
     Route: 048
     Dates: start: 20220719
  10. CRESTOR [Concomitant]
     Active Substance: ROSUVASTATIN CALCIUM
     Indication: Dyslipidaemia
     Dosage: 20 MG, DAILY
     Route: 048
     Dates: start: 20220722
  11. PANADOL [Concomitant]
     Active Substance: ACETAMINOPHEN
     Indication: Intermittent claudication
     Dosage: 1 G, 2X/DAY
     Route: 048
     Dates: start: 20220903

REACTIONS (1)
  - Transient ischaemic attack [Fatal]

NARRATIVE: CASE EVENT DATE: 20221124
